FAERS Safety Report 16467334 (Version 3)
Quarter: 2019Q3

REPORT INFORMATION
  Report Type: Spontaneous
  Country: JP (occurrence: JP)
  Receive Date: 20190624
  Receipt Date: 20190913
  Transmission Date: 20191004
  Serious: No
  Sender: FDA-Public Use
  Company Number: JP-BEH-2019102508

PATIENT
  Age: 59 Year
  Sex: Female

DRUGS (7)
  1. HIZENTRA [Suspect]
     Active Substance: HUMAN IMMUNOGLOBULIN G
     Dosage: 12G/60ML, ONCE EVERY WEEK (SUNDAY)
     Route: 058
     Dates: start: 20190728, end: 20190818
  2. TRAMCET [Concomitant]
     Active Substance: ACETAMINOPHEN\TRAMADOL
     Indication: NEURALGIA
  3. HIZENTRA [Suspect]
     Active Substance: HUMAN IMMUNOGLOBULIN G
     Indication: PROPHYLAXIS
     Dosage: 8 G (40 ML), TOT
     Route: 058
     Dates: start: 20180509, end: 20180509
  4. HIZENTRA [Suspect]
     Active Substance: HUMAN IMMUNOGLOBULIN G
     Indication: CHRONIC INFLAMMATORY DEMYELINATING POLYRADICULONEUROPATHY
     Dosage: 4 G (20 ML), TOT
     Route: 058
     Dates: start: 20180508, end: 20180508
  5. HIZENTRA [Suspect]
     Active Substance: HUMAN IMMUNOGLOBULIN G
     Dosage: 12 G (60 ML), QW
     Route: 058
     Dates: start: 20180514
  6. HIZENTRA [Suspect]
     Active Substance: HUMAN IMMUNOGLOBULIN G
     Dosage: 12 GRAM/60 ML, TOT
     Route: 058
     Dates: start: 20190526, end: 20190526
  7. TRAMCET [Concomitant]
     Active Substance: ACETAMINOPHEN\TRAMADOL
     Indication: HEADACHE
     Route: 048

REACTIONS (16)
  - Pruritus [Recovered/Resolved]
  - Skin discomfort [Recovered/Resolved]
  - Skin discomfort [Recovering/Resolving]
  - Skin discomfort [Recovered/Resolved]
  - Injection site swelling [Not Recovered/Not Resolved]
  - No adverse event [Unknown]
  - Administration site oedema [Recovering/Resolving]
  - Pruritus [Recovering/Resolving]
  - Obesity [Unknown]
  - Injection site extravasation [Recovered/Resolved]
  - Incorrect dose administered [Unknown]
  - Pruritus [Recovered/Resolved]
  - Pruritus [Recovered/Resolved]
  - Skin discomfort [Recovered/Resolved]
  - Injection site extravasation [Recovered/Resolved]
  - Feeling abnormal [Unknown]

NARRATIVE: CASE EVENT DATE: 20190514
